FAERS Safety Report 7617513-1 (Version None)
Quarter: 2011Q3

REPORT INFORMATION
  Report Type: 
  Country: None (occurrence: None)
  Receive Date: 20110718
  Receipt Date: 20110706
  Transmission Date: 20111222
  Serious: Yes (Hospitalization)
  Sender: FDA-Public Use
  Company Number: IT-NOVOPROD-331458

PATIENT
  Sex: Male

DRUGS (10)
  1. REPAGLINIDE [Suspect]
     Indication: DIABETES MELLITUS
     Dosage: 2 MG, QD
     Route: 048
     Dates: start: 20110501, end: 20110705
  2. CONGESCOR [Concomitant]
     Dosage: 1 TAB, QD
     Route: 048
  3. ROCALTROL [Concomitant]
     Dosage: 1 CAPS, QD
     Route: 048
  4. ALIFLUS [Concomitant]
     Dosage: 20 U, QD
     Route: 065
  5. CORDARONE [Concomitant]
  6. RAMIPRIL [Concomitant]
     Indication: ATRIAL FIBRILLATION
     Dosage: 1 TAB, QD
     Route: 065
  7. CALCIO CARBONATO [Concomitant]
     Dosage: 2 U, QD
     Route: 065
  8. SPIRIVA [Concomitant]
  9. ATORVASTATIN CALCIUM [Concomitant]
     Dosage: 5 MG, QD
     Route: 065
  10. NEXIUM [Concomitant]

REACTIONS (2)
  - DROP ATTACKS [None]
  - HYPOGLYCAEMIA [None]
